FAERS Safety Report 9877089 (Version 1)
Quarter: 2014Q1

REPORT INFORMATION
  Report Type: Spontaneous
  Country: CO (occurrence: CO)
  Receive Date: 20140206
  Receipt Date: 20140206
  Transmission Date: 20141002
  Serious: Yes (Death)
  Sender: FDA-Public Use
  Company Number: CO-BAYER-2014-013587

PATIENT
  Age: 80 Year
  Sex: Female

DRUGS (2)
  1. ULTRAVIST? 300 [Suspect]
     Indication: IMAGING PROCEDURE
     Dosage: 20 ML, ONCE
     Route: 048
     Dates: start: 20140111, end: 20140111
  2. OXYGEN [Concomitant]

REACTIONS (1)
  - Cyanosis [Fatal]
